FAERS Safety Report 8427312-9 (Version None)
Quarter: 2012Q2

REPORT INFORMATION
  Report Type: 
  Country: None (occurrence: None)
  Receive Date: 20120611
  Receipt Date: 20120529
  Transmission Date: 20120825
  Serious: Yes (Hospitalization, Other)
  Sender: FDA-Public Use
  Company Number: US-PFIZER INC-2012125753

PATIENT
  Sex: Female

DRUGS (2)
  1. PRISTIQ [Suspect]
     Dosage: UNK
  2. PROTONIX [Suspect]
     Dosage: UNK

REACTIONS (2)
  - WITHDRAWAL SYNDROME [None]
  - PNEUMONIA [None]
